FAERS Safety Report 7705384 (Version 3)
Quarter: 2013Q1

REPORT INFORMATION
  Report Type: Spontaneous
  Country: US (occurrence: US)
  Receive Date: 20101213
  Receipt Date: 20130221
  Transmission Date: 20140127
  Serious: Yes (Other)
  Sender: FDA-Public Use
  Company Number: US-ROCHE-724623

PATIENT
  Age: 17 Year
  Sex: Male

DRUGS (13)
  1. ACCUTANE [Suspect]
     Indication: ACNE
     Route: 048
     Dates: start: 200508, end: 200602
  2. ACCUTANE [Suspect]
     Route: 048
     Dates: start: 200610, end: 200701
  3. ACCUTANE [Suspect]
     Route: 048
     Dates: start: 200707, end: 200710
  4. ACCUTANE [Suspect]
     Route: 048
     Dates: start: 200801, end: 200905
  5. ACCUTANE [Suspect]
     Route: 065
     Dates: start: 200509, end: 200602
  6. AMNESTEEM [Suspect]
     Indication: ACNE
     Route: 065
     Dates: start: 20050812, end: 200602
  7. AMNESTEEM [Suspect]
     Route: 065
  8. AMNESTEEM [Suspect]
     Route: 065
  9. CLARAVIS [Suspect]
     Indication: ACNE
     Route: 065
  10. TETRACYCLINE [Concomitant]
     Indication: ACNE
     Dosage: 500 MG 1 QID PER WEEK, 1BID PER WEEK THEN 1 DAILY .
     Route: 065
  11. ZYRTEC-D [Concomitant]
     Route: 065
  12. CLEOCIN T GEL [Concomitant]
     Dosage: FREQUENCY BID
     Route: 065
  13. MINOCYCLINE [Concomitant]
     Route: 065

REACTIONS (19)
  - Colitis ulcerative [Unknown]
  - Inflammatory bowel disease [Unknown]
  - Intestinal obstruction [Unknown]
  - Nausea [Unknown]
  - Abdominal pain [Unknown]
  - Rectal haemorrhage [Unknown]
  - Irritable bowel syndrome [Unknown]
  - Nasopharyngitis [Unknown]
  - Erythema [Unknown]
  - Rash [Unknown]
  - Lip dry [Unknown]
  - Dry skin [Unknown]
  - Nasal dryness [Unknown]
  - Epistaxis [Unknown]
  - Myalgia [Unknown]
  - Back pain [Unknown]
  - Skin exfoliation [Unknown]
  - Blood cholesterol increased [Unknown]
  - Bronchitis [Unknown]
